FAERS Safety Report 16888990 (Version 1)
Quarter: 2019Q4

REPORT INFORMATION
  Report Type: Spontaneous
  Country: GB (occurrence: GB)
  Receive Date: 20191007
  Receipt Date: 20191007
  Transmission Date: 20200122
  Serious: Yes (Other)
  Sender: FDA-Public Use
  Company Number: GB-TEVA-2019-GB-1117299

PATIENT
  Age: 68 Year
  Sex: Male

DRUGS (1)
  1. SIMVASTATIN. [Suspect]
     Active Substance: SIMVASTATIN
     Dosage: 10 MG 1 DAYS
     Route: 048

REACTIONS (3)
  - Nightmare [Recovered/Resolved]
  - Aggression [Recovered/Resolved]
  - Sleep disorder [Recovered/Resolved]
